FAERS Safety Report 7630086-2 (Version None)
Quarter: 2011Q3

REPORT INFORMATION
  Report Type: 
  Country: None (occurrence: None)
  Receive Date: 20110715
  Receipt Date: 20110704
  Transmission Date: 20111222
  Serious: Yes (Death, Other)
  Sender: FDA-Public Use
  Company Number: IT-AGG-07-2011-0075

PATIENT
  Sex: Male

DRUGS (1)
  1. AGGRASTAT [Suspect]
     Indication: ANGINA PECTORIS

REACTIONS (5)
  - ARTERIAL DISORDER [None]
  - HAEMORRHAGE [None]
  - INTESTINAL INFARCTION [None]
  - MYOCARDIAL INFARCTION [None]
  - CONDITION AGGRAVATED [None]
